FAERS Safety Report 6428508-8 (Version None)
Quarter: 2009Q4

REPORT INFORMATION
  Report Type: 
  Country: None (occurrence: None)
  Receive Date: 20091105
  Receipt Date: 20091029
  Transmission Date: 20100525
  Serious: Yes (Hospitalization)
  Sender: FDA-Public Use
  Company Number: FR-ABBOTT-09P-056-0605783-00

PATIENT
  Sex: Male

DRUGS (8)
  1. KALETRA [Suspect]
     Indication: HIV INFECTION
     Route: 048
     Dates: start: 20070101
  2. AVLOCARDYL [Suspect]
     Indication: DRUG USE FOR UNKNOWN INDICATION
     Dates: start: 20090209, end: 20090901
  3. PEGASYS [Suspect]
     Indication: HEPATITIS C
     Route: 058
     Dates: start: 20090220
  4. PEGASYS [Suspect]
     Dates: start: 20040101, end: 20050101
  5. COPEGUS [Suspect]
     Indication: HEPATITIS C
     Route: 048
     Dates: start: 20090220, end: 20090601
  6. COPEGUS [Suspect]
     Dates: start: 20090601
  7. TRUVADA [Suspect]
     Indication: HIV INFECTION
     Route: 048
     Dates: start: 20070101
  8. FACTANE [Concomitant]
     Indication: HAEMOPHILIA

REACTIONS (3)
  - HEPATIC CIRRHOSIS [None]
  - PORPHYRIA [None]
  - VARICES OESOPHAGEAL [None]
